FAERS Safety Report 8112370-1 (Version None)
Quarter: 2012Q1

REPORT INFORMATION
  Report Type: 
  Country: None (occurrence: None)
  Receive Date: 20120203
  Receipt Date: 20120126
  Transmission Date: 20120608
  Serious: No
  Sender: FDA-Public Use
  Company Number: US-B.I. PHARMACEUTICALS,INC./RIDGEFIELD-2012-BP-01599BP

PATIENT
  Age: 79 Year
  Sex: Female

DRUGS (4)
  1. ZANTAC 75 [Suspect]
     Indication: PROPHYLAXIS
     Dosage: 75 MG
     Route: 048
     Dates: start: 20120118, end: 20120118
  2. ZANTAC 75 [Suspect]
     Indication: GASTRIC ULCER
  3. PREDNISONE TAB [Concomitant]
     Indication: MYALGIA
     Dates: start: 20020101
  4. PREDNISONE TAB [Concomitant]
     Indication: TEMPORAL ARTERITIS

REACTIONS (2)
  - DIZZINESS [None]
  - CHILLS [None]
